FAERS Safety Report 7915926-1 (Version None)
Quarter: 2011Q4

REPORT INFORMATION
  Report Type: 
  Country: None (occurrence: None)
  Receive Date: 20111115
  Receipt Date: 20111103
  Transmission Date: 20120403
  Serious: Yes (Hospitalization, Disabling, Other)
  Sender: FDA-Public Use
  Company Number: US-ELI_LILLY_AND_COMPANY-US200912004403

PATIENT
  Sex: Female

DRUGS (12)
  1. FORTEO [Suspect]
     Indication: OSTEOPOROSIS
     Dosage: 20 UG, QD
     Route: 065
  2. FORTEO [Suspect]
     Dosage: 20 UG, QD
     Route: 065
  3. HYDROCHLOROTHIAZIDE [Concomitant]
  4. VESICARE [Concomitant]
  5. LYRICA [Concomitant]
  6. LISINOPRIL [Concomitant]
  7. METOPROLOL SUCCINATE [Concomitant]
  8. HYDROCODONE BITARTRATE [Concomitant]
  9. LUNESTA [Concomitant]
  10. TEMAZEPAM [Concomitant]
  11. FORTEO [Suspect]
     Dosage: 20 UG, QD
     Route: 065
  12. ZOLOFT [Concomitant]

REACTIONS (24)
  - CEREBROVASCULAR ACCIDENT [None]
  - HOSPITALISATION [None]
  - POLLAKIURIA [None]
  - GAIT DISTURBANCE [None]
  - MUSCULOSKELETAL CHEST PAIN [None]
  - RIB FRACTURE [None]
  - FATIGUE [None]
  - UPPER LIMB FRACTURE [None]
  - ARTHRALGIA [None]
  - ERYTHEMA [None]
  - CATARACT OPERATION [None]
  - WEIGHT DECREASED [None]
  - DIARRHOEA [None]
  - HAND FRACTURE [None]
  - FALL [None]
  - JAW DISORDER [None]
  - BALANCE DISORDER [None]
  - FACE INJURY [None]
  - MEMORY IMPAIRMENT [None]
  - BACK PAIN [None]
  - ABASIA [None]
  - FOOT OPERATION [None]
  - PERIPHERAL NERVE OPERATION [None]
  - DRUG INEFFECTIVE [None]
